FAERS Safety Report 23884118 (Version 1)
Quarter: 2024Q2

REPORT INFORMATION
  Report Type: Spontaneous
  Country: US (occurrence: None)
  Receive Date: 20240521
  Receipt Date: 20240521
  Transmission Date: 20240717
  Serious: Yes (Hospitalization)
  Sender: FDA-Public Use
  Company Number: None

PATIENT
  Age: 48 Year
  Sex: Male

DRUGS (2)
  1. VERAPAMIL HCL [Suspect]
     Active Substance: VERAPAMIL HYDROCHLORIDE
     Indication: Migraine
     Dates: start: 20230912, end: 20240430
  2. QUETIAPINE FUMARATE [Suspect]
     Active Substance: QUETIAPINE FUMARATE
     Indication: Psychotic disorder
     Dates: start: 20130910

REACTIONS (5)
  - Intentional overdose [None]
  - Somnolence [None]
  - Alcohol test positive [None]
  - Respiratory failure [None]
  - Cardiogenic shock [None]

NARRATIVE: CASE EVENT DATE: 20240424
